FAERS Safety Report 7222409-3 (Version None)
Quarter: 2011Q1

REPORT INFORMATION
  Report Type: 
  Country: None (occurrence: None)
  Receive Date: 20110104
  Receipt Date: 20101220
  Transmission Date: 20110831
  Serious: Yes (Hospitalization, Other)
  Sender: FDA-Public Use
  Company Number: TPH-00313

PATIENT

DRUGS (2)
  1. CORTICOID [Concomitant]
  2. TRIQUILAR (ETHINYLESTRADIOL + LEVONORGESTREL) COATED TABLET (LOT # UNK [Suspect]
     Indication: CONTRACEPTION
     Dosage: TRANSPLACENTAL
     Route: 064
     Dates: end: 20091101

REACTIONS (3)
  - MATERNAL DRUGS AFFECTING FOETUS [None]
  - PREMATURE BABY [None]
  - CAESAREAN SECTION [None]
